FAERS Safety Report 6536870-0 (Version None)
Quarter: 2010Q1

REPORT INFORMATION
  Report Type: 
  Country: None (occurrence: None)
  Receive Date: 20100107
  Receipt Date: 20091223
  Transmission Date: 20100710
  Serious: Yes (Death)
  Sender: FDA-Public Use
  Company Number: AE 2009-173

PATIENT
  Age: 86 Year
  Sex: Female

DRUGS (7)
  1. FAZACLO ODT [Suspect]
     Dosage: 125 MG DAILY PO
     Route: 048
     Dates: start: 20090513, end: 20091122
  2. LOPRESSOR [Concomitant]
  3. PEPCID [Concomitant]
  4. COZAAR [Concomitant]
  5. MORPHINE [Concomitant]
  6. ATROPINE [Concomitant]
  7. COMPAZINE [Concomitant]

REACTIONS (1)
  - DEATH [None]
